FAERS Safety Report 4348877-2 (Version None)
Quarter: 2004Q1

REPORT INFORMATION
  Report Type: 
  Country: None (occurrence: None)
  Receive Date: 20040325
  Receipt Date: 20040204
  Transmission Date: 20041129
  Serious: No
  Sender: FDA-Public Use
  Company Number: USA040258487

PATIENT
  Sex: Female
  Weight: 59 kg

DRUGS (6)
  1. FORTEO [Suspect]
     Dates: start: 20040121
  2. EVISTA [Suspect]
  3. IRON [Concomitant]
  4. MULTIVITAMIN [Concomitant]
  5. LUTEIN [Concomitant]
  6. CITRACAL (CALCIUM CITRATE) [Concomitant]

REACTIONS (1)
  - OEDEMA PERIPHERAL [None]
